FAERS Safety Report 5304627-4 (Version None)
Quarter: 2007Q2

REPORT INFORMATION
  Report Type: 
  Country: None (occurrence: None)
  Receive Date: 20070423
  Receipt Date: 20070419
  Transmission Date: 20071010
  Serious: Yes (Death, Life-Threatening)
  Sender: FDA-Public Use
  Company Number: FR-GLAXOSMITHKLINE-B0466992A

PATIENT
  Age: 84 Year
  Sex: Female

DRUGS (7)
  1. CLAMOXYL [Suspect]
     Indication: BRONCHITIS
     Route: 048
     Dates: start: 20070203, end: 20070321
  2. KARDEGIC [Concomitant]
  3. DETENSIEL [Concomitant]
  4. LASIX [Concomitant]
  5. IRBESARTAN [Concomitant]
  6. TEMESTA [Concomitant]
  7. LAROXYL [Concomitant]

REACTIONS (12)
  - CHOLESTASIS [None]
  - CONDITION AGGRAVATED [None]
  - EOSINOPHILIA [None]
  - EPIDERMAL NECROSIS [None]
  - HEPATOCELLULAR DAMAGE [None]
  - LYMPHADENOPATHY [None]
  - ORAL SOFT TISSUE DISORDER [None]
  - RASH MACULO-PAPULAR [None]
  - RENAL FAILURE CHRONIC [None]
  - SEPTIC SHOCK [None]
  - TOXIC SKIN ERUPTION [None]
  - VASCULITIS [None]
